FAERS Safety Report 18984870 (Version 2)
Quarter: 2021Q2

REPORT INFORMATION
  Report Type: Spontaneous
  Country: JP (occurrence: JP)
  Receive Date: 20210308
  Receipt Date: 20210602
  Transmission Date: 20210717
  Serious: Yes (Hospitalization, Other)
  Sender: FDA-Public Use
  Company Number: JP-BRISTOL-MYERS SQUIBB COMPANY-BMS-2021-020735

PATIENT
  Age: 83 Year
  Sex: Female

DRUGS (2)
  1. METHOTREXATE. [Concomitant]
     Active Substance: METHOTREXATE
     Indication: RHEUMATOID ARTHRITIS
     Dosage: UNK
     Route: 048
  2. ORENCIA [Suspect]
     Active Substance: ABATACEPT
     Indication: RHEUMATOID ARTHRITIS
     Dosage: UNK UNK, QWK
     Route: 065

REACTIONS (10)
  - Hospitalisation [Unknown]
  - Muscular weakness [Unknown]
  - Underdose [Unknown]
  - Wrong technique in product usage process [Unknown]
  - Physical deconditioning [Unknown]
  - Injection site haemorrhage [Unknown]
  - Pain [Unknown]
  - Device leakage [Unknown]
  - Therapeutic response decreased [Unknown]
  - Injection site extravasation [Unknown]
